FAERS Safety Report 16542435 (Version 1)
Quarter: 2019Q3

REPORT INFORMATION
  Report Type: Spontaneous
  Country: LB (occurrence: LB)
  Receive Date: 20190708
  Receipt Date: 20190708
  Transmission Date: 20191004
  Serious: Yes (Hospitalization)
  Sender: FDA-Public Use
  Company Number: LB-NALPROPION PHARMACEUTICALS INC.-2019-007750

PATIENT

DRUGS (1)
  1. CONTRAVE [Suspect]
     Active Substance: BUPROPION HYDROCHLORIDE\NALTREXONE HYDROCHLORIDE
     Indication: WEIGHT CONTROL
     Dosage: 4 TABLETS PER DAY
     Route: 048

REACTIONS (2)
  - Psychotic disorder [Unknown]
  - Abnormal behaviour [Unknown]
